FAERS Safety Report 7228495-9 (Version None)
Quarter: 2011Q1

REPORT INFORMATION
  Report Type: 
  Country: None (occurrence: None)
  Receive Date: 20110116
  Receipt Date: 20101224
  Transmission Date: 20110831
  Serious: Yes (Other)
  Sender: FDA-Public Use
  Company Number: PHHY2010JP08075

PATIENT
  Sex: Male

DRUGS (14)
  1. DEPAKENE [Concomitant]
     Dosage: 800 MG, UNK
     Route: 048
  2. TANNALBIN [Concomitant]
     Dosage: 2 G, UNK
     Route: 048
     Dates: end: 20091028
  3. AMN107 [Suspect]
     Dosage: 200 MG, QW
     Route: 048
     Dates: start: 20100303, end: 20100331
  4. AMN107 [Suspect]
     Dosage: 600 MG, UNK
     Route: 048
     Dates: start: 20101008
  5. AMN107 [Suspect]
     Dosage: 600 MG, UNK
     Route: 048
     Dates: start: 20100721, end: 20100903
  6. PROMAC [Concomitant]
     Dosage: 1 G, UNK
     Route: 048
  7. ITRIZOLE [Concomitant]
     Indication: PROPHYLAXIS
     Dosage: 100 MG DAILY
     Route: 048
     Dates: end: 20100107
  8. AMN107 [Suspect]
     Dosage: 400 MG, QW2
     Route: 048
     Dates: start: 20100401, end: 20100720
  9. AMN107 [Suspect]
     Dosage: 200 MG DAILY
     Route: 048
     Dates: start: 20091216, end: 20100119
  10. ZYLORIC [Concomitant]
     Dosage: 200 MG, UNK
     Route: 048
  11. AMOBAN [Concomitant]
     Dosage: 7.5 MG, UNK
     Route: 048
  12. AMN107 [Suspect]
     Indication: CHRONIC MYELOID LEUKAEMIA
     Dosage: 400 MG DAILY
     Route: 048
     Dates: start: 20091001, end: 20091118
  13. AMN107 [Suspect]
     Dosage: 200 MG ALTERNATE DAY
     Route: 048
     Dates: start: 20100120, end: 20100202
  14. AMLODIPINE BESYLATE [Concomitant]
     Dosage: 2.5 MG, UNK
     Route: 048

REACTIONS (2)
  - THROMBOCYTOPENIA [None]
  - LIPASE INCREASED [None]
